FAERS Safety Report 12620727 (Version 1)
Quarter: 2016Q3

REPORT INFORMATION
  Report Type: Spontaneous
  Country: DE (occurrence: DE)
  Receive Date: 20160804
  Receipt Date: 20160804
  Transmission Date: 20161109
  Serious: No
  Sender: FDA-Public Use
  Company Number: DE-LUPIN PHARMACEUTICALS INC.-2016-00774

PATIENT
  Sex: 0

DRUGS (1)
  1. LEVETIRACETAM-HORMOSAN 500 MG FILMTABLETTEN [Suspect]
     Active Substance: LEVETIRACETAM
     Indication: PRODUCT USED FOR UNKNOWN INDICATION
     Route: 065

REACTIONS (3)
  - Poor quality drug administered [Unknown]
  - No adverse event [Unknown]
  - Product colour issue [Unknown]
